FAERS Safety Report 10257495 (Version 1)
Quarter: 2014Q2

REPORT INFORMATION
  Report Type: Spontaneous
  Country: US (occurrence: US)
  Receive Date: 20140625
  Receipt Date: 20140625
  Transmission Date: 20141212
  Serious: No
  Sender: FDA-Public Use
  Company Number: US-GLAXOSMITHKLINE-A1040323A

PATIENT
  Sex: Female

DRUGS (3)
  1. VERAMYST [Suspect]
     Indication: RESPIRATORY DISORDER
     Dates: start: 20120503
  2. FLOVENT [Concomitant]
  3. SEREVENT [Concomitant]

REACTIONS (1)
  - Sinus disorder [Unknown]
